FAERS Safety Report 5624872-8 (Version None)
Quarter: 2008Q1

REPORT INFORMATION
  Report Type: 
  Country: None (occurrence: None)
  Receive Date: 20080213
  Receipt Date: 20080124
  Transmission Date: 20080703
  Serious: Yes (Life-Threatening, Hospitalization)
  Sender: FDA-Public Use
  Company Number: US-ROCHE-545635

PATIENT
  Age: 72 Year
  Sex: Female

DRUGS (3)
  1. ALEVE [Suspect]
     Indication: OSTEOARTHRITIS
     Route: 048
  2. NAPROSYN [Suspect]
     Indication: OSTEOARTHRITIS
     Route: 065
  3. MOTRIN [Suspect]
     Indication: OSTEOARTHRITIS
     Route: 065
     Dates: start: 20031101

REACTIONS (20)
  - BLOOD MAGNESIUM DECREASED [None]
  - BLOOD POTASSIUM DECREASED [None]
  - CARDIAC VALVE DISEASE [None]
  - DEPRESSION [None]
  - DIASTOLIC DYSFUNCTION [None]
  - DIVERTICULUM [None]
  - FLUID OVERLOAD [None]
  - GASTRITIS [None]
  - GASTROINTESTINAL HAEMORRHAGE [None]
  - HIATUS HERNIA [None]
  - IRON DEFICIENCY ANAEMIA [None]
  - MUSCLE SPASMS [None]
  - PAIN [None]
  - PULMONARY OEDEMA [None]
  - PYREXIA [None]
  - SINUS TACHYCARDIA [None]
  - STOMACH DISCOMFORT [None]
  - SUICIDE ATTEMPT [None]
  - SYNCOPE [None]
  - VENTRICULAR TACHYCARDIA [None]
